FAERS Safety Report 7931352-3 (Version None)
Quarter: 2011Q4

REPORT INFORMATION
  Report Type: 
  Country: None (occurrence: None)
  Receive Date: 20111121
  Receipt Date: 20111115
  Transmission Date: 20120403
  Serious: Yes (Hospitalization)
  Sender: FDA-Public Use
  Company Number: GB-ABBOTT-11P-167-0874581-00

PATIENT
  Age: 39 Year
  Sex: Male

DRUGS (15)
  1. VALPROATE SODIUM [Suspect]
     Indication: SCHIZOPHRENIA, PARANOID TYPE
     Dates: start: 20080205, end: 20080302
  2. CLOZAPINE [Suspect]
     Indication: SCHIZOPHRENIA, PARANOID TYPE
     Dates: end: 20071217
  3. LORAZEPAM [Concomitant]
     Indication: PRODUCT USED FOR UNKNOWN INDICATION
  4. LITHIUM CARBONATE [Suspect]
     Indication: SCHIZOPHRENIA, PARANOID TYPE
     Dates: start: 20080306, end: 20080618
  5. QUETIAPINE FUMARATE [Suspect]
     Indication: SCHIZOPHRENIA, PARANOID TYPE
     Dosage: AT BEDTIME
     Dates: start: 20080101, end: 20080108
  6. VALPROATE SODIUM [Suspect]
     Dates: start: 20080306
  7. DEPIXOL [Suspect]
     Indication: SCHIZOPHRENIA, PARANOID TYPE
     Route: 030
     Dates: end: 20071217
  8. ABILIFY [Suspect]
     Indication: SCHIZOPHRENIA, PARANOID TYPE
     Dates: start: 20080218, end: 20080223
  9. ANTIBIOTICS [Concomitant]
     Indication: PRODUCT USED FOR UNKNOWN INDICATION
  10. VALPROATE SODIUM [Suspect]
     Dates: start: 20080303, end: 20080305
  11. CHLORPROMAZINE [Suspect]
     Indication: SCHIZOPHRENIA, PARANOID TYPE
     Dates: end: 20071217
  12. CLOZAPINE [Suspect]
     Dates: start: 20080129, end: 20080205
  13. PROCYCLIDINE HYDROCHLORIDE 2MG TAB [Suspect]
     Indication: SCHIZOPHRENIA, PARANOID TYPE
     Dates: end: 20071217
  14. CLOZAPINE [Suspect]
     Dates: start: 20080326
  15. HYOSCINE HYDROBROMIDE [Concomitant]
     Indication: PRODUCT USED FOR UNKNOWN INDICATION
     Dates: start: 20071211

REACTIONS (2)
  - NEUROLEPTIC MALIGNANT SYNDROME [None]
  - BLOOD CREATINE PHOSPHOKINASE INCREASED [None]
